FAERS Safety Report 10272352 (Version 1)
Quarter: 2014Q3

REPORT INFORMATION
  Report Type: Spontaneous
  Country: RU (occurrence: RU)
  Receive Date: 20140702
  Receipt Date: 20140702
  Transmission Date: 20150326
  Serious: Yes (Other)
  Sender: FDA-Public Use
  Company Number: RU-UCBSA-2014003686

PATIENT
  Age: 6 Year
  Sex: Female
  Weight: 20 kg

DRUGS (7)
  1. VIMPAT [Suspect]
     Active Substance: LACOSAMIDE
     Dosage: 50 MG, 3X/DAY (TID)
     Route: 048
     Dates: start: 201311, end: 201312
  2. CONVULEX [Concomitant]
     Active Substance: CARBAMAZEPINE OR VALPROIC ACID
     Dosage: 750 MG, 2X/DAY (BID)
     Route: 048
  3. KEPPRA [Concomitant]
     Active Substance: LEVETIRACETAM
     Dosage: 500 MG, 2X/DAY (BID)
     Route: 048
  4. SYNACTHEN [Concomitant]
     Active Substance: COSYNTROPIN
     Dosage: UNK
     Dates: end: 201311
  5. CLONAZEPAM. [Concomitant]
     Active Substance: CLONAZEPAM
     Dosage: 2 MG, ONCE DAILY (QD)
     Route: 048
  6. VIMPAT [Suspect]
     Active Substance: LACOSAMIDE
     Dosage: UNK
     Route: 048
  7. DEPAKINE [Concomitant]
     Active Substance: VALPROATE SODIUM
     Dosage: UNK
     Dates: end: 201311

REACTIONS (2)
  - Fall [Unknown]
  - Convulsion [Recovered/Resolved]

NARRATIVE: CASE EVENT DATE: 201311
